FAERS Safety Report 8831697 (Version 2)
Quarter: 2012Q4

REPORT INFORMATION
  Report Type: 
  Country: IT (occurrence: IT)
  Receive Date: 20121009
  Receipt Date: 20121010
  Transmission Date: 20130627
  Serious: Yes (Hospitalization)
  Sender: FDA-Public Use
  Company Number: IT-ROCHE-1141252

PATIENT
  Age: 26 Year
  Sex: Male

DRUGS (1)
  1. SYNFLEX [Suspect]
     Indication: DENTAL OPERATION
     Route: 048
     Dates: start: 20120527, end: 20120527

REACTIONS (1)
  - Periorbital oedema [Recovered/Resolved]
